FAERS Safety Report 9753229 (Version 3)
Quarter: 2015Q3

REPORT INFORMATION
  Report Type: Spontaneous
  Country: US (occurrence: US)
  Receive Date: 20131213
  Receipt Date: 20150805
  Transmission Date: 20151125
  Serious: No
  Sender: FDA-Public Use
  Company Number: US-GILEAD-2010-0026836

PATIENT
  Age: 69 Year
  Sex: Female
  Weight: 64.86 kg

DRUGS (8)
  1. BIAXIN [Concomitant]
     Active Substance: CLARITHROMYCIN
  2. ONE A DAY [Concomitant]
  3. LETAIRIS [Suspect]
     Active Substance: AMBRISENTAN
     Indication: PULMONARY ARTERIAL HYPERTENSION
     Route: 048
     Dates: start: 20090303
  4. OXYGEN. [Concomitant]
     Active Substance: OXYGEN
  5. DARVOCET-N 100 [Concomitant]
     Active Substance: ACETAMINOPHEN\PROPOXYPHENE NAPSYLATE
  6. REVATIO [Concomitant]
     Active Substance: SILDENAFIL CITRATE
  7. MUCINEX [Concomitant]
     Active Substance: GUAIFENESIN
  8. FLUTICASONE PROP SP [Concomitant]

REACTIONS (1)
  - Sinusitis [Unknown]
